FAERS Safety Report 6406758-4 (Version None)
Quarter: 2009Q4

REPORT INFORMATION
  Report Type: 
  Country: None (occurrence: None)
  Receive Date: 20091020
  Receipt Date: 20091015
  Transmission Date: 20100525
  Serious: Yes (Life-Threatening)
  Sender: FDA-Public Use
  Company Number: US-JNJFOC-20091005679

PATIENT
  Age: 59 Year
  Sex: Male
  Weight: 79.38 kg

DRUGS (3)
  1. TOPAMAX [Suspect]
     Indication: DRUG USE FOR UNKNOWN INDICATION
     Route: 048
  2. ZICAM [Suspect]
     Indication: NASOPHARYNGITIS
  3. ZYRTEC [Concomitant]
     Route: 065

REACTIONS (4)
  - DYSPNOEA [None]
  - SPEECH DISORDER [None]
  - SWOLLEN TONGUE [None]
  - THROAT TIGHTNESS [None]
